FAERS Safety Report 5233569-8 (Version None)
Quarter: 2007Q1

REPORT INFORMATION
  Report Type: 
  Country: None (occurrence: None)
  Receive Date: 20070208
  Receipt Date: 20070126
  Transmission Date: 20070707
  Serious: Yes (Hospitalization)
  Sender: FDA-Public Use
  Company Number: DEWYE370126JAN07

PATIENT
  Age: 9 Year

DRUGS (1)
  1. ENBREL [Suspect]
     Indication: VASCULITIS
     Dosage: UNKNOWN
     Route: 058
     Dates: start: 20040101

REACTIONS (2)
  - PITYRIASIS ROSEA [None]
  - VARICELLA [None]
